FAERS Safety Report 9008457 (Version 1)
Quarter: 2012Q4

REPORT INFORMATION
  Report Type: Spontaneous
  Country: US (occurrence: None)
  Receive Date: 20121227
  Receipt Date: 20121227
  Transmission Date: 20130627
  Serious: Yes (Death, Hospitalization)
  Sender: FDA-Public Use
  Company Number: 2012-22324

PATIENT
  Age: 75 Year
  Sex: Female
  Weight: 57 kg

DRUGS (2)
  1. BACLOFEN [Suspect]
     Dosage: 1 tab every 8 hours, Oral
     Route: 048
     Dates: start: 20120825
  2. OXYCODONE [Suspect]
     Dosage: 1 tab q 4-6 hours PRN, Oral
     Route: 048
     Dates: start: 201109

REACTIONS (1)
  - Loss of consciousness [None]
